FAERS Safety Report 7817632 (Version 4)
Quarter: 2015Q1

REPORT INFORMATION
  Report Type: Spontaneous
  Country: US (occurrence: US)
  Receive Date: 20110217
  Receipt Date: 20150114
  Transmission Date: 20150721
  Serious: Yes (Hospitalization)
  Sender: FDA-Public Use
  Company Number: US-BAYER-2011-015099

PATIENT
  Age: 42 Year
  Sex: Female
  Weight: 63.49 kg

DRUGS (7)
  1. PLAVIX [Concomitant]
     Active Substance: CLOPIDOGREL BISULFATE
     Dosage: UNK
     Dates: start: 200404
  2. PRAVACHOL [Concomitant]
     Active Substance: PRAVASTATIN SODIUM
     Dosage: UNK
     Dates: start: 200404
  3. OMNICEF [Concomitant]
     Active Substance: CEFDINIR
     Dosage: 300 UNK, QD
     Route: 048
     Dates: start: 20040109
  4. PROLEX D [Concomitant]
     Dosage: UNK UNK, BID
     Route: 048
     Dates: start: 20040123
  5. YASMIN [Suspect]
     Active Substance: DROSPIRENONE\ETHINYL ESTRADIOL
     Dosage: UNK
     Route: 048
     Dates: start: 200401, end: 20040411
  6. ASPIRIN. [Concomitant]
     Active Substance: ASPIRIN
     Dosage: UNK
     Dates: start: 200404
  7. KEFLEX [Concomitant]
     Active Substance: CEPHALEXIN
     Dosage: 400 MG, QID
     Route: 048
     Dates: start: 20040123

REACTIONS (7)
  - Pain [None]
  - Cerebrovascular accident [None]
  - Anxiety [None]
  - Cerebral infarction [None]
  - Emotional distress [None]
  - Injury [None]
  - Psychological trauma [None]

NARRATIVE: CASE EVENT DATE: 20040409
